FAERS Safety Report 8882239 (Version 1)
Quarter: 2012Q4

REPORT INFORMATION
  Report Type: 
  Country: JP (occurrence: JP)
  Receive Date: 20121102
  Receipt Date: 20121102
  Transmission Date: 20130627
  Serious: Yes (Death, Hospitalization)
  Sender: FDA-Public Use
  Company Number: PHHY2012JP098972

PATIENT
  Age: 41 Year
  Sex: Male

DRUGS (1)
  1. HEPARIN [Suspect]
     Indication: ACUTE MYOCARDIAL INFARCTION

REACTIONS (5)
  - Heparin-induced thrombocytopenia [Fatal]
  - Coronary artery thrombosis [Unknown]
  - Arterial occlusive disease [Unknown]
  - Cardio-respiratory arrest [Unknown]
  - Pulmonary congestion [Unknown]
